FAERS Safety Report 4982493-4 (Version None)
Quarter: 2006Q2

REPORT INFORMATION
  Report Type: 
  Country: None (occurrence: None)
  Receive Date: 20060421
  Receipt Date: 20060412
  Transmission Date: 20061013
  Serious: Yes (Other)
  Sender: FDA-Public Use
  Company Number: 2006050523

PATIENT
  Sex: Male

DRUGS (5)
  1. LIPITOR [Suspect]
     Indication: ILL-DEFINED DISORDER
  2. VERAPAMIL [Concomitant]
  3. LISINOPRIL [Concomitant]
  4. METFORMIN [Concomitant]
  5. LANTUS [Concomitant]

REACTIONS (3)
  - BLOOD CHOLESTEROL INCREASED [None]
  - DRUG INEFFECTIVE [None]
  - MYOCARDIAL INFARCTION [None]
